FAERS Safety Report 11246574 (Version 1)
Quarter: 2015Q3

REPORT INFORMATION
  Report Type: Spontaneous
  Country: US (occurrence: None)
  Receive Date: 20150706
  Receipt Date: 20150706
  Transmission Date: 20151125
  Serious: Yes (Other)
  Sender: FDA-Public Use
  Company Number: 2015COV00132

PATIENT
  Age: 67 Year
  Sex: Female
  Weight: 68 kg

DRUGS (5)
  1. BETAPACE [Suspect]
     Active Substance: SOTALOL HYDROCHLORIDE
     Indication: ATRIAL FLUTTER
     Route: 048
     Dates: start: 1990
  2. CRESTOR [Concomitant]
     Active Substance: ROSUVASTATIN CALCIUM
  3. BETAPACE [Suspect]
     Active Substance: SOTALOL HYDROCHLORIDE
     Indication: ATRIAL FIBRILLATION
     Route: 048
     Dates: start: 1990
  4. LANOXIN [Concomitant]
     Active Substance: DIGOXIN
  5. UNSPECIFIED VITAMINS (DIETARY SUPPLEMENT) [Concomitant]

REACTIONS (5)
  - Atrial flutter [None]
  - Atrial fibrillation [None]
  - Off label use [None]
  - Cataract [None]
  - Condition aggravated [None]

NARRATIVE: CASE EVENT DATE: 2014
